FAERS Safety Report 25415586 (Version 1)
Quarter: 2025Q2

REPORT INFORMATION
  Report Type: Spontaneous
  Country: ES (occurrence: ES)
  Receive Date: 20250610
  Receipt Date: 20250610
  Transmission Date: 20250716
  Serious: Yes (Hospitalization, Other)
  Sender: TEVA
  Company Number: None

PATIENT
  Age: 5 Year
  Sex: Female

DRUGS (3)
  1. FENTANYL [Suspect]
     Active Substance: FENTANYL
     Indication: Sedation
     Route: 065
     Dates: start: 20250509, end: 20250509
  2. NALOXONE [Concomitant]
     Active Substance: NALOXONE
     Indication: Anaesthesia reversal
     Route: 065
  3. FLUMAZENIL [Concomitant]
     Active Substance: FLUMAZENIL
     Indication: Anaesthesia reversal
     Route: 065

REACTIONS (2)
  - Chest wall rigidity [Recovered/Resolved]
  - Medication error [Recovered/Resolved]

NARRATIVE: CASE EVENT DATE: 20250509
